FAERS Safety Report 4379733-1 (Version None)
Quarter: 2004Q2

REPORT INFORMATION
  Report Type: 
  Country: None (occurrence: None)
  Receive Date: 20040617
  Receipt Date: 20040331
  Transmission Date: 20050107
  Serious: Yes (Hospitalization)
  Sender: FDA-Public Use
  Company Number: ES-GLAXOSMITHKLINE-B0328812A

PATIENT
  Age: 43 Year
  Sex: Female

DRUGS (6)
  1. LAMOTRIGINE [Suspect]
     Indication: BIPOLAR DISORDER
     Dosage: 50MG PER DAY
     Route: 048
     Dates: start: 20040303, end: 20040301
  2. HALOPERIDOL [Suspect]
  3. LITHIUM [Concomitant]
     Indication: BIPOLAR DISORDER
  4. MIRTAZAPINE [Concomitant]
     Indication: BIPOLAR DISORDER
  5. VENLAFAXINE [Concomitant]
  6. TRANXILIUM [Concomitant]

REACTIONS (7)
  - ANXIETY [None]
  - BLOOD CREATINE PHOSPHOKINASE INCREASED [None]
  - CONFUSIONAL STATE [None]
  - DIARRHOEA [None]
  - NERVOUSNESS [None]
  - NEUROLEPTIC MALIGNANT SYNDROME [None]
  - RASH MACULAR [None]
